FAERS Safety Report 9610991 (Version 1)
Quarter: 2013Q4

REPORT INFORMATION
  Report Type: Spontaneous
  Country: US (occurrence: US)
  Receive Date: 20131009
  Receipt Date: 20131009
  Transmission Date: 20140711
  Serious: Yes (Other)
  Sender: FDA-Public Use
  Company Number: US-GLAXOSMITHKLINE-A1044380A

PATIENT
  Age: 20 Year
  Sex: Male

DRUGS (2)
  1. SORIATANE [Suspect]
     Indication: PSORIASIS
     Dosage: 50MG PER DAY
     Route: 048
     Dates: start: 201003, end: 201209
  2. ANTIDEPRESSANT [Concomitant]

REACTIONS (7)
  - Drug ineffective [Unknown]
  - Alopecia [Recovering/Resolving]
  - Skin discolouration [Not Recovered/Not Resolved]
  - Ingrowing nail [Unknown]
  - Nail operation [Unknown]
  - Depression [Unknown]
  - Groin pain [Unknown]
